FAERS Safety Report 22036000 (Version 3)
Quarter: 2023Q1

REPORT INFORMATION
  Report Type: Report from Study
  Country: US (occurrence: US)
  Receive Date: 20230224
  Receipt Date: 20230313
  Transmission Date: 20230418
  Serious: Yes (Hospitalization)
  Sender: FDA-Public Use
  Company Number: US-CARA THERAPEUTICS, INC.-2023-00057-US

PATIENT

DRUGS (22)
  1. ELIQUIS [Concomitant]
     Active Substance: APIXABAN
     Indication: Atrial fibrillation
     Dosage: 5 UNK
     Dates: start: 1999
  2. TYLENOL [Concomitant]
     Active Substance: ACETAMINOPHEN
     Indication: Osteoarthritis
     Dosage: 650 UNK
     Dates: start: 2012
  3. VENTOLIN [Concomitant]
     Active Substance: ALBUTEROL SULFATE
     Indication: Asthma
     Dosage: 1 UNK
     Dates: start: 2002
  4. ALLOPURINOL [Concomitant]
     Active Substance: ALLOPURINOL
     Indication: Gout
     Dosage: 300 UNK
     Dates: start: 2017
  5. NORVASC [Concomitant]
     Active Substance: AMLODIPINE BESYLATE
     Indication: Hypertension
     Dosage: 5 UNK
     Dates: start: 2002
  6. VITAMIN C [Concomitant]
     Active Substance: ASCORBIC ACID
     Indication: Vitamin supplementation
     Dosage: 500 UNK
     Dates: start: 2002
  7. LIPITOR [Concomitant]
     Active Substance: ATORVASTATIN CALCIUM
     Indication: Hyperlipidaemia
     Dosage: 40 UNK
     Dates: start: 2002
  8. BETAMETHASONE [Concomitant]
     Active Substance: BETAMETHASONE
     Indication: Pruritus
     Dosage: 1 UNK
     Dates: start: 2021, end: 202210
  9. CALCIFEDIOL ANHYDROUS [Concomitant]
     Active Substance: CALCIFEDIOL ANHYDROUS
     Indication: Hyperparathyroidism secondary
     Dosage: 30 UNK
     Dates: start: 2021
  10. CRANBERRY [Concomitant]
     Active Substance: CRANBERRY
     Indication: Prophylaxis urinary tract infection
     Dosage: 400 UNK
     Dates: start: 2012
  11. FERROUS SULFATE [Concomitant]
     Active Substance: FERROUS SULFATE
     Indication: Anaemia
     Dosage: 325 UNK
     Dates: start: 2012
  12. FEXOFENADINE HYDROCHLORIDE [Concomitant]
     Active Substance: FEXOFENADINE HYDROCHLORIDE
     Indication: Seasonal allergy
     Dosage: 60 UNK
     Dates: start: 2021
  13. FLONASE [Concomitant]
     Active Substance: FLUTICASONE PROPIONATE
     Indication: Asthma
     Dosage: 50 UNK
     Dates: start: 2002
  14. LASIX [Concomitant]
     Active Substance: FUROSEMIDE
     Indication: Lymphoedema
     Dosage: 20 UNK
     Dates: start: 2012
  15. HYDROCORTISONE [Concomitant]
     Active Substance: HYDROCORTISONE
     Indication: Pruritus
     Dosage: 1 UNK
     Dates: start: 2021, end: 202210
  16. LANTUS [Concomitant]
     Active Substance: INSULIN GLARGINE
     Indication: Diabetes mellitus
     Dosage: 8 UNK
     Dates: start: 20221221
  17. SYNTHROID [Concomitant]
     Active Substance: LEVOTHYROXINE SODIUM
     Indication: Hypothyroidism
     Dosage: 125 UNK
     Dates: start: 1956
  18. VICTOZA [Concomitant]
     Active Substance: LIRAGLUTIDE
     Indication: Diabetes mellitus
     Dosage: 18 UNK
     Dates: start: 2017
  19. COZAAR [Concomitant]
     Active Substance: LOSARTAN POTASSIUM
     Indication: Chronic kidney disease
     Dosage: 25 UNK
     Dates: start: 2002
  20. THERAGRAN [VITAMINS NOS] [Concomitant]
     Indication: Vitamin supplementation
     Dosage: 1 UNK
     Dates: start: 2002
  21. RENVELA [Concomitant]
     Active Substance: SEVELAMER CARBONATE
     Indication: Chronic kidney disease
     Dosage: 800 UNK
     Dates: start: 2017
  22. TOPROL XL [Concomitant]
     Active Substance: METOPROLOL SUCCINATE
     Indication: Hypertension
     Dosage: 50 UNK
     Dates: start: 2017

REACTIONS (2)
  - Encephalopathy [Recovering/Resolving]
  - Cerebrovascular accident [Recovered/Resolved]

NARRATIVE: CASE EVENT DATE: 20230210
